FAERS Safety Report 6394969-6 (Version None)
Quarter: 2009Q4

REPORT INFORMATION
  Report Type: 
  Country: None (occurrence: None)
  Receive Date: 20091009
  Receipt Date: 20090930
  Transmission Date: 20100525
  Serious: Yes (Other)
  Sender: FDA-Public Use
  Company Number: BR-PFIZER INC-2009267728

PATIENT
  Age: 39 Year

DRUGS (5)
  1. DEPO-PROVERA [Suspect]
     Indication: OFF LABEL USE
     Dosage: 150 MG, SINGLE
     Route: 030
     Dates: start: 20090511, end: 20090511
  2. DEPO-PROVERA [Suspect]
     Indication: DYSFUNCTIONAL UTERINE BLEEDING
  3. PRIMOSISTON [Concomitant]
     Dosage: UNK
  4. GALENIC /ETHINYLESTRADIOL/GESTODENE/ [Concomitant]
     Dosage: UNK
  5. TRANSAMIN [Concomitant]
     Dosage: UNK

REACTIONS (2)
  - HYPOAESTHESIA [None]
  - UTERINE POLYP [None]
